FAERS Safety Report 10012853 (Version 1)
Quarter: 2014Q1

REPORT INFORMATION
  Report Type: Spontaneous
  Country: US (occurrence: US)
  Receive Date: 20140314
  Receipt Date: 20140314
  Transmission Date: 20141002
  Serious: Yes (Other)
  Sender: FDA-Public Use
  Company Number: US-PFIZER INC-2014073355

PATIENT
  Age: 66 Year
  Sex: Female
  Weight: 56.24 kg

DRUGS (4)
  1. ARTHROTEC [Suspect]
     Indication: OSTEOARTHRITIS
     Dosage: ^75MG^ , 2X/DAY
  2. ARTHROTEC [Suspect]
     Indication: OSTEOARTHRITIS
  3. LYRICA [Suspect]
     Indication: FIBROMYALGIA
     Dosage: 75 MG, 2X/DAY
  4. OASIS DROPS [Concomitant]
     Indication: DRY EYE
     Dosage: UNK

REACTIONS (2)
  - Meniscus injury [Unknown]
  - Anaemia [Unknown]
